FAERS Safety Report 4946342-2 (Version None)
Quarter: 2006Q1

REPORT INFORMATION
  Report Type: 
  Country: None (occurrence: None)
  Receive Date: 20060317
  Receipt Date: 20060308
  Transmission Date: 20060701
  Serious: Yes (Hospitalization)
  Sender: FDA-Public Use
  Company Number: JP-JNJFOC-20060303109

PATIENT
  Age: 69 Year
  Sex: Female

DRUGS (11)
  1. CRAVIT [Suspect]
     Indication: PYELONEPHRITIS ACUTE
     Route: 048
     Dates: start: 20060124, end: 20060131
  2. ACETAMINOPHEN [Suspect]
     Indication: PYREXIA
     Route: 048
     Dates: start: 20060124, end: 20060131
  3. LIASOPHIN [Concomitant]
     Route: 042
  4. AMINOFLUID [Concomitant]
     Route: 042
  5. AMINOFLUID [Concomitant]
     Route: 042
  6. AMINOFLUID [Concomitant]
     Route: 042
  7. AMLODIN [Concomitant]
  8. DIOVAN [Concomitant]
  9. BUFFERIN [Concomitant]
  10. BUFFERIN [Concomitant]
  11. BUFFERIN [Concomitant]

REACTIONS (1)
  - GASTRIC ULCER [None]
